FAERS Safety Report 4749098-1 (Version None)
Quarter: 2005Q3

REPORT INFORMATION
  Report Type: 
  Country: None (occurrence: None)
  Receive Date: 20050819
  Receipt Date: 20050809
  Transmission Date: 20060218
  Serious: Yes (Hospitalization)
  Sender: FDA-Public Use
  Company Number: GB-ROCHE-413479

PATIENT
  Age: 38 Year
  Sex: Female
  Weight: 101.6 kg

DRUGS (1)
  1. XENICAL [Suspect]
     Indication: OBESITY
     Route: 048
     Dates: start: 20040906, end: 20050630

REACTIONS (1)
  - KIDNEY INFECTION [None]
